FAERS Safety Report 4585551-1 (Version None)
Quarter: 2005Q1

REPORT INFORMATION
  Report Type: 
  Country: None (occurrence: None)
  Receive Date: 20050214
  Receipt Date: 20041228
  Transmission Date: 20050727
  Serious: Yes (Hospitalization)
  Sender: FDA-Public Use
  Company Number: 05-086

PATIENT
  Age: 65 Year
  Sex: Male

DRUGS (3)
  1. DEXAMETHASONE [Suspect]
     Indication: MULTIPLE MYELOMA
     Dosage: 40 MG/DAY, ORAL
     Route: 048
     Dates: start: 20011120, end: 20011221
  2. CYTOXAN [Concomitant]
  3. THIOTEPA [Concomitant]

REACTIONS (4)
  - ASTHENIA [None]
  - CSF TEST ABNORMAL [None]
  - LEUKAEMIA PLASMACYTIC [None]
  - PYREXIA [None]
